FAERS Safety Report 4663746-6 (Version None)
Quarter: 2005Q2

REPORT INFORMATION
  Report Type: 
  Country: None (occurrence: None)
  Receive Date: 20050511
  Receipt Date: 20050312
  Transmission Date: 20051028
  Serious: Yes (Other)
  Sender: FDA-Public Use
  Company Number: 398685

PATIENT
  Age: 50 Year
  Sex: Male

DRUGS (2)
  1. PEGASYS [Suspect]
     Dosage: OTHER
     Route: 050
     Dates: start: 20041215
  2. COPEGUS [Concomitant]
     Dosage: 3 DOSE FORM, 2 PER DAY, ORAL
     Route: 048
     Dates: start: 20041215

REACTIONS (5)
  - DEPRESSION [None]
  - MALAISE [None]
  - NAUSEA [None]
  - SUICIDAL IDEATION [None]
  - VOMITING [None]
